FAERS Safety Report 6901909-7 (Version None)
Quarter: 2010Q3

REPORT INFORMATION
  Report Type: 
  Country: None (occurrence: None)
  Receive Date: 20100803
  Receipt Date: 20080326
  Transmission Date: 20110219
  Serious: No
  Sender: FDA-Public Use
  Company Number: US-PFIZER INC-2008027617

PATIENT
  Sex: Male

DRUGS (2)
  1. LYRICA [Suspect]
     Indication: PAIN IN EXTREMITY
     Dates: start: 20060601
  2. LISINOPRIL [Concomitant]

REACTIONS (4)
  - ANXIETY [None]
  - GAIT DISTURBANCE [None]
  - INSOMNIA [None]
  - WEIGHT INCREASED [None]
